FAERS Safety Report 7064673-X (Version None)
Quarter: 2010Q4

REPORT INFORMATION
  Report Type: 
  Country: None (occurrence: None)
  Receive Date: 20101019
  Receipt Date: 20100923
  Transmission Date: 20110411
  Serious: Yes (Other)
  Sender: FDA-Public Use
  Company Number: 2010SP051119

PATIENT
  Age: 26 Year
  Sex: Female

DRUGS (1)
  1. IMPLANON [Suspect]
     Indication: CONTRACEPTION
     Dates: start: 20090831

REACTIONS (4)
  - CRYING [None]
  - EMOTIONAL DISORDER [None]
  - MENOMETRORRHAGIA [None]
  - WEIGHT DECREASED [None]
